FAERS Safety Report 5715784-X (Version None)
Quarter: 2008Q2

REPORT INFORMATION
  Report Type: 
  Country: None (occurrence: None)
  Receive Date: 20080424
  Receipt Date: 20080424
  Transmission Date: 20081010
  Serious: No
  Sender: FDA-Public Use
  Company Number: None

PATIENT
  Sex: Male
  Weight: 39 kg

DRUGS (25)
  1. HEP FLUSH KIT [Suspect]
     Indication: INDWELLING CATHETER MANAGEMENT
     Dosage: 3 ML ONCE DAILY IV
     Route: 042
     Dates: start: 20080310, end: 20080310
  2. HEP FLUSH KIT [Suspect]
     Indication: PARENTERAL NUTRITION
     Dosage: 3 ML ONCE DAILY IV
     Route: 042
     Dates: start: 20080310, end: 20080310
  3. TPN 2-IN-1 [Concomitant]
  4. INTRALIPID 10% [Concomitant]
  5. M.V.I. PEDIATRIC [Concomitant]
  6. SODIUM CHLORIDE INJ [Suspect]
  7. TYLENOL/CODEINE #3 [Concomitant]
  8. DIFLUCAN [Concomitant]
  9. PENTAMIDINE ISETHIONATE [Concomitant]
  10. PREDNISONE [Concomitant]
  11. PREVACID [Concomitant]
  12. NEUPOGEN [Concomitant]
  13. NEURONTIN [Concomitant]
  14. ZOFRAN [Concomitant]
  15. ALLOPURINOL [Concomitant]
  16. MIRALAX [Concomitant]
  17. ZANTAC [Concomitant]
  18. ATARAX [Concomitant]
  19. ALBUTERL [Concomitant]
  20. AEROSOL [Concomitant]
  21. ALUMINUM HYDROXIDE AND MAGNESIUM TRISILICATE [Concomitant]
  22. ACIDOPHILUS LACTOBACILLUS [Concomitant]
  23. LOPERAMIDE HCL [Concomitant]
  24. SIMETHICONE [Concomitant]
  25. COLACE [Concomitant]

REACTIONS (6)
  - ABDOMINAL PAIN [None]
  - DYSPNOEA [None]
  - HYPOTENSION [None]
  - NAUSEA [None]
  - PHARMACEUTICAL PRODUCT COMPLAINT [None]
  - VOMITING [None]
